FAERS Safety Report 16891982 (Version 2)
Quarter: 2019Q4

REPORT INFORMATION
  Report Type: Spontaneous
  Country: GB (occurrence: GB)
  Receive Date: 20191007
  Receipt Date: 20191009
  Transmission Date: 20200122
  Serious: Yes (Other)
  Sender: FDA-Public Use
  Company Number: GB-MYLANLABS-2019M1093001

PATIENT
  Age: 84 Year
  Sex: Male

DRUGS (22)
  1. ATORVASTATIN [Suspect]
     Active Substance: ATORVASTATIN
     Indication: PRODUCT USED FOR UNKNOWN INDICATION
     Dosage: 80 MILLIGRAM, QD
  2. AMITRIPTYLINE [Concomitant]
     Active Substance: AMITRIPTYLINE
     Dosage: 10 MILLIGRAM, QD
  3. RANEXA [Interacting]
     Active Substance: RANOLAZINE
     Indication: ANGINA PECTORIS
     Dosage: 750 MILLIGRAM, QD
     Dates: start: 20181019
  4. CETIRIZINE [Concomitant]
     Active Substance: CETIRIZINE HYDROCHLORIDE
     Dosage: 10 MILLIGRAM, QD
  5. QUININE BISULFATE [Concomitant]
     Active Substance: QUININE BISULFATE
     Dosage: 300 MILLIGRAM, QD
  6. SODIUM HYDROGEN CARBONATE [Concomitant]
     Active Substance: SODIUM BICARBONATE
     Dosage: 40 MILLILITER, QD
     Route: 048
  7. SIMVASTATIN. [Concomitant]
     Active Substance: SIMVASTATIN
     Dosage: 40 MILLIGRAM, QD
  8. FUROSEMIDE. [Concomitant]
     Active Substance: FUROSEMIDE
     Dosage: 160 MILLIGRAM, QD
  9. FELODIPINE. [Concomitant]
     Active Substance: FELODIPINE
     Dosage: 10 MILLIGRAM, QD
  10. TAFLUPROST [Concomitant]
     Active Substance: TAFLUPROST
     Dosage: 0.3 MILLILITER, QD
     Route: 047
  11. BISOPROLOL [Concomitant]
     Active Substance: BISOPROLOL
     Dosage: 2.5 MILLIGRAM, QD
  12. LANSOPRAZOLE. [Concomitant]
     Active Substance: LANSOPRAZOLE
     Dosage: 30 MILLIGRAM, QD
  13. PARACETAMOL [Concomitant]
     Active Substance: ACETAMINOPHEN
  14. INSULIN LISPRO [Concomitant]
     Active Substance: INSULIN LISPRO
     Dosage: UNK
  15. ACETYLSALICYLIC ACID [Concomitant]
     Active Substance: ASPIRIN
     Dosage: 75 MILLIGRAM, QD
  16. METFORMIN [Concomitant]
     Active Substance: METFORMIN HYDROCHLORIDE
     Dosage: 1000 MILLIGRAM, QD
  17. INSULIN GLARGINE [Concomitant]
     Active Substance: INSULIN GLARGINE
  18. BRINZOLAMIDE [Concomitant]
     Active Substance: BRINZOLAMIDE
     Route: 047
  19. SODIUM ALGINATE [Concomitant]
     Active Substance: SODIUM ALGINATE
  20. TAMSULOSIN [Concomitant]
     Active Substance: TAMSULOSIN
     Dosage: 400 MICROGRAM, QD
  21. BETAMETHASONE VALERATE W/FUSIDIC ACID [Concomitant]
     Dosage: UNK
  22. TESTOSTERONE UNDECANOATE. [Concomitant]
     Active Substance: TESTOSTERONE UNDECANOATE

REACTIONS (2)
  - Drug interaction [Unknown]
  - Cellulitis [Not Recovered/Not Resolved]

NARRATIVE: CASE EVENT DATE: 2018
